FAERS Safety Report 5766728-6 (Version None)
Quarter: 2008Q2

REPORT INFORMATION
  Report Type: 
  Country: None (occurrence: None)
  Receive Date: 20080612
  Receipt Date: 20080603
  Transmission Date: 20081010
  Serious: Yes (Other)
  Sender: FDA-Public Use
  Company Number: ES-BAYER-200819577GPV

PATIENT
  Sex: Male
  Weight: 3.98 kg

DRUGS (1)
  1. ASPIRIN [Suspect]
     Indication: INFLUENZA LIKE ILLNESS
     Route: 064

REACTIONS (11)
  - ATRIAL SEPTAL DEFECT [None]
  - CAESAREAN SECTION [None]
  - DUCTUS ARTERIOSUS PREMATURE CLOSURE [None]
  - DYSPNOEA [None]
  - HYPOXIA [None]
  - MATERNAL DRUGS AFFECTING FOETUS [None]
  - NEONATAL DISORDER [None]
  - PULMONARY HYPERTENSION [None]
  - RIGHT VENTRICULAR HYPERTROPHY [None]
  - TRICUSPID VALVE INCOMPETENCE [None]
  - VENTRICULAR SEPTAL DEFECT [None]
